FAERS Safety Report 6408972-0 (Version None)
Quarter: 2009Q4

REPORT INFORMATION
  Report Type: 
  Country: None (occurrence: None)
  Receive Date: 20091019
  Receipt Date: 20091019
  Transmission Date: 20100525
  Serious: Yes (Other)
  Sender: FDA-Public Use
  Company Number: None

PATIENT
  Age: 27 Year
  Sex: Male
  Weight: 68.0396 kg

DRUGS (1)
  1. AMBIEN [Suspect]
     Indication: INSOMNIA
     Dosage: 10 MG AT BEDTIME
     Dates: start: 20060301, end: 20091016

REACTIONS (3)
  - SCAR [None]
  - SOMNAMBULISM [None]
  - THERMAL BURN [None]
